FAERS Safety Report 10043018 (Version 3)
Quarter: 2014Q2

REPORT INFORMATION
  Report Type: Report from Study
  Country: US (occurrence: US)
  Receive Date: 20140328
  Receipt Date: 20140509
  Transmission Date: 20141212
  Serious: Yes (Death)
  Sender: FDA-Public Use
  Company Number: US-BIOGENIDEC-2014BI027235

PATIENT
  Age: 57 Year
  Sex: Female

DRUGS (1)
  1. AVONEX [Suspect]
     Indication: MULTIPLE SCLEROSIS
     Route: 030
     Dates: start: 20120616, end: 20140315

REACTIONS (7)
  - Secondary progressive multiple sclerosis [Unknown]
  - Off label use [Unknown]
  - Hepatic failure [Fatal]
  - Renal failure [Fatal]
  - Pneumonia [Fatal]
  - Sepsis [Fatal]
  - Urinary tract infection [Fatal]
